FAERS Safety Report 8777441 (Version 1)
Quarter: 2012Q4

REPORT INFORMATION
  Report Type: 
  Country: US (occurrence: US)
  Receive Date: 20120911
  Receipt Date: 20120911
  Transmission Date: 20130627
  Serious: Yes (Other)
  Sender: FDA-Public Use
  Company Number: US-PFIZER INC-2012223147

PATIENT
  Age: 48 Year
  Sex: Male
  Weight: 61.68 kg

DRUGS (3)
  1. NEURONTIN [Suspect]
     Indication: FEELING JITTERY
     Dosage: 800 mg, 3x/day
     Route: 048
     Dates: start: 201209, end: 201209
  2. NEURONTIN [Suspect]
     Indication: BIPOLAR DISORDER
  3. LOSARTAN [Concomitant]
     Indication: HYPERTENSION
     Dosage: UNK

REACTIONS (2)
  - Influenza [Not Recovered/Not Resolved]
  - Off label use [Unknown]
